FAERS Safety Report 4893417-2 (Version None)
Quarter: 2006Q1

REPORT INFORMATION
  Report Type: 
  Country: None (occurrence: None)
  Receive Date: 20060127
  Receipt Date: 20051212
  Transmission Date: 20060701
  Serious: Yes (Other)
  Sender: FDA-Public Use
  Company Number: PHBS2005ES18368

PATIENT
  Age: 65 Year
  Sex: Female

DRUGS (2)
  1. ELIDEL [Suspect]
     Dates: end: 20020101
  2. PROTOPIC [Concomitant]

REACTIONS (1)
  - BREAST CANCER FEMALE [None]
